FAERS Safety Report 6990390-8 (Version None)
Quarter: 2010Q3

REPORT INFORMATION
  Report Type: 
  Country: None (occurrence: None)
  Receive Date: 20100916
  Receipt Date: 20100616
  Transmission Date: 20110219
  Serious: Yes (Other)
  Sender: FDA-Public Use
  Company Number: CH-PFIZER INC-2010065338

PATIENT
  Sex: Female

DRUGS (2)
  1. LYRICA [Suspect]
     Dosage: 450 MG, 1X/DAY
     Route: 048
  2. ZOLPIDEM [Suspect]
     Dosage: UNK
     Route: 048

REACTIONS (2)
  - DRUG DEPENDENCE [None]
  - EUPHORIC MOOD [None]
